FAERS Safety Report 15105015 (Version 1)
Quarter: 2018Q3

REPORT INFORMATION
  Report Type: Spontaneous
  Country: AU (occurrence: AU)
  Receive Date: 20180703
  Receipt Date: 20180703
  Transmission Date: 20181010
  Serious: Yes (Other)
  Sender: FDA-Public Use
  Company Number: AU-ALEXION PHARMACEUTICALS INC.-A201808399

PATIENT
  Age: 53 Year
  Sex: Male

DRUGS (9)
  1. BASILIXIMAB [Concomitant]
     Active Substance: BASILIXIMAB
     Indication: IMMUNOSUPPRESSION
     Route: 065
  2. METHYLPREDNISOLONE. [Concomitant]
     Active Substance: METHYLPREDNISOLONE
     Indication: IMMUNOSUPPRESSION
     Route: 065
  3. PREDNISOLONE. [Concomitant]
     Active Substance: PREDNISOLONE
     Indication: IMMUNOSUPPRESSION
     Route: 065
  4. SOLIRIS [Suspect]
     Active Substance: ECULIZUMAB
     Dosage: UNK, EVERY 12 ? 14 DAYS
     Route: 065
  5. MYCOPHENOLATE [Concomitant]
     Active Substance: MYCOPHENOLIC ACID
     Indication: IMMUNOSUPPRESSION
     Route: 065
  6. SOLIRIS [Suspect]
     Active Substance: ECULIZUMAB
     Dosage: UNK EVERY 12 DAYS
     Route: 065
  7. PREDNISOLONE. [Concomitant]
     Active Substance: PREDNISOLONE
     Indication: TRANSPLANT REJECTION
  8. SOLIRIS [Suspect]
     Active Substance: ECULIZUMAB
     Indication: PAROXYSMAL NOCTURNAL HAEMOGLOBINURIA
     Route: 065
  9. TACROLIMUS. [Concomitant]
     Active Substance: TACROLIMUS
     Indication: IMMUNOSUPPRESSION
     Route: 065

REACTIONS (9)
  - End stage renal disease [Unknown]
  - Leukopenia [Unknown]
  - Respiratory tract infection viral [Unknown]
  - Post procedural haemorrhage [Unknown]
  - Transplant rejection [Unknown]
  - Tubulointerstitial nephritis [Unknown]
  - Neutropenia [Unknown]
  - Haematoma [Unknown]
  - Haemolysis [Unknown]
